FAERS Safety Report 8921305 (Version 2)
Quarter: 2013Q1

REPORT INFORMATION
  Report Type: Spontaneous
  Country: US (occurrence: US)
  Receive Date: 20121122
  Receipt Date: 20130116
  Transmission Date: 20140127
  Serious: Yes (Other)
  Sender: FDA-Public Use
  Company Number: US-BAXTER-2012BAX019717

PATIENT
  Age: 59 Year
  Sex: Male
  Weight: 79.45 kg

DRUGS (7)
  1. RECOMBINATE [Suspect]
     Indication: PROPHYLAXIS
     Route: 042
     Dates: end: 20120813
  2. RECOMBINATE [Suspect]
     Route: 042
     Dates: end: 20120618
  3. RECOMBINATE [Suspect]
     Route: 042
     Dates: start: 20120622, end: 20120719
  4. RECOMBINATE [Suspect]
     Route: 042
     Dates: start: 20120721, end: 20120730
  5. RECOMBINATE [Suspect]
     Route: 042
     Dates: start: 20120814
  6. BENAZEPRIL HCL [Concomitant]
     Indication: HYPERTENSION
     Dosage: 20-25 MG
     Route: 048
  7. ATENOLOL [Concomitant]
     Indication: HYPERTENSION
     Route: 048

REACTIONS (3)
  - Haemarthrosis [Recovered/Resolved]
  - Haemarthrosis [Recovered/Resolved]
  - Haemarthrosis [Recovered/Resolved]
